FAERS Safety Report 16654697 (Version 1)
Quarter: 2019Q3

REPORT INFORMATION
  Report Type: Spontaneous
  Country: FR (occurrence: FR)
  Receive Date: 20190801
  Receipt Date: 20190801
  Transmission Date: 20191004
  Serious: Yes (Death)
  Sender: FDA-Public Use
  Company Number: FR-B.I. PHARMACEUTICALS,INC./RIDGEFIELD-2019-BI-031574

PATIENT
  Sex: Male
  Weight: 52 kg

DRUGS (2)
  1. PRAXBIND [Suspect]
     Active Substance: IDARUCIZUMAB
     Indication: PROCOAGULANT THERAPY
     Route: 065
     Dates: start: 20190720, end: 20190720
  2. TOVIAZ [Concomitant]
     Active Substance: FESOTERODINE FUMARATE
     Indication: BENIGN PROSTATIC HYPERPLASIA
     Route: 048

REACTIONS (4)
  - Clumsiness [Fatal]
  - Pneumothorax [Fatal]
  - Fall [Fatal]
  - Chest injury [Fatal]
